FAERS Safety Report 20553600 (Version 1)
Quarter: 2022Q1

REPORT INFORMATION
  Report Type: Spontaneous
  Country: US (occurrence: None)
  Receive Date: 20211012
  Receipt Date: 20211012
  Transmission Date: 20220424
  Serious: No
  Sender: FDA-Public Use
  Company Number: None

PATIENT
  Age: 74 Year
  Sex: Female
  Weight: 80.1 kg

DRUGS (13)
  1. CAPECITABINE [Suspect]
     Active Substance: CAPECITABINE
     Indication: Breast cancer
     Dosage: OTHER FREQUENCY : BID 14/21 DAYS;?
     Route: 048
     Dates: start: 20210831, end: 20210927
  2. AMLODIPINE [Concomitant]
     Active Substance: AMLODIPINE BESYLATE
  3. ATORVASTATIN [Concomitant]
     Active Substance: ATORVASTATIN
  4. BISOPROLOL FUMARATE\HYDROCHLOROTHIAZIDE [Concomitant]
     Active Substance: BISOPROLOL FUMARATE\HYDROCHLOROTHIAZIDE
  5. CETIRIZINE [Concomitant]
     Active Substance: CETIRIZINE HYDROCHLORIDE
  6. LOSARTAN [Concomitant]
     Active Substance: LOSARTAN
  7. METFORMIN [Concomitant]
     Active Substance: METFORMIN HYDROCHLORIDE
  8. OZEMPIC [Concomitant]
     Active Substance: SEMAGLUTIDE
  9. PEPCID AC [Concomitant]
     Active Substance: FAMOTIDINE
  10. Preservision/ AREDS [Concomitant]
  11. SPIRONOLACTONE [Concomitant]
     Active Substance: SPIRONOLACTONE
  12. TRESIBA [Concomitant]
     Active Substance: INSULIN DEGLUDEC
  13. VITAMIN D3 [Concomitant]
     Active Substance: CHOLECALCIFEROL

REACTIONS (2)
  - Gastrooesophageal reflux disease [None]
  - Haemoptysis [None]

NARRATIVE: CASE EVENT DATE: 20210927
